FAERS Safety Report 6195947-2 (Version None)
Quarter: 2009Q2

REPORT INFORMATION
  Report Type: 
  Country: None (occurrence: None)
  Receive Date: 20090520
  Receipt Date: 20090512
  Transmission Date: 20091009
  Serious: Yes (Hospitalization, Other)
  Sender: FDA-Public Use
  Company Number: JP-JNJFOC-20090400007

PATIENT
  Age: 75 Year
  Sex: Female

DRUGS (13)
  1. NEOPERIDOL [Suspect]
     Indication: SCHIZOAFFECTIVE DISORDER
     Route: 030
  2. SILECE [Concomitant]
     Indication: INSOMNIA
     Route: 048
  3. GOODMIN [Concomitant]
     Indication: INSOMNIA
     Route: 048
  4. SENNOSIDE [Concomitant]
     Indication: CONSTIPATION
     Route: 048
  5. ADALAT CC [Concomitant]
     Indication: HYPERTENSION
     Route: 048
  6. NORVASC [Concomitant]
     Indication: HYPERTENSION
     Route: 048
  7. SIGMART [Concomitant]
     Indication: ANGINA PECTORIS
     Route: 048
  8. LIMAS [Concomitant]
     Indication: ANGER
     Route: 048
  9. LIMAS [Concomitant]
     Indication: AFFECTIVE DISORDER
     Route: 048
  10. ZYPREXA [Concomitant]
     Route: 048
  11. ZYPREXA [Concomitant]
     Indication: SCHIZOAFFECTIVE DISORDER
     Route: 048
  12. DISOPYRAMIDE [Concomitant]
     Indication: ARRHYTHMIA
     Route: 048
  13. BIPERIDEN HYDROCHLORIDE TAB [Concomitant]
     Indication: SALIVARY HYPERSECRETION
     Route: 048

REACTIONS (4)
  - DEPRESSED LEVEL OF CONSCIOUSNESS [None]
  - DYSURIA [None]
  - MALAISE [None]
  - SALIVARY HYPERSECRETION [None]
